APPROVED DRUG PRODUCT: AZELASTINE HYDROCHLORIDE
Active Ingredient: AZELASTINE HYDROCHLORIDE
Strength: 0.2055MG/SPRAY
Dosage Form/Route: SPRAY, METERED;NASAL
Application: A216801 | Product #001
Applicant: PADAGIS ISRAEL PHARMACEUTICALS LTD
Approved: May 8, 2024 | RLD: No | RS: No | Type: DISCN